FAERS Safety Report 6843424-5 (Version None)
Quarter: 2010Q3

REPORT INFORMATION
  Report Type: 
  Country: None (occurrence: None)
  Receive Date: 20100715
  Receipt Date: 20100707
  Transmission Date: 20110219
  Serious: Yes (Other)
  Sender: FDA-Public Use
  Company Number: IE-BAYER-201031707GPV

PATIENT
  Age: 85 Year
  Sex: Female

DRUGS (6)
  1. CIPROXIN [Suspect]
     Indication: RASH ERYTHEMATOUS
     Route: 048
     Dates: start: 20100528
  2. FUROSEMIDE/AMILORIDE [Concomitant]
  3. VERAPAMIL [Concomitant]
  4. ACETYLSALICYLIC ACID [Concomitant]
  5. ATORVASTATIN CALCIUM [Concomitant]
  6. MIRTAZAPINE [Concomitant]

REACTIONS (6)
  - ALOPECIA [None]
  - BURNING SENSATION [None]
  - FACIAL PAIN [None]
  - MALAISE [None]
  - MUSCULOSKELETAL PAIN [None]
  - PRURITUS [None]
